FAERS Safety Report 5135213-7 (Version None)
Quarter: 2006Q4

REPORT INFORMATION
  Report Type: 
  Country: None (occurrence: None)
  Receive Date: 20061026
  Receipt Date: 20061016
  Transmission Date: 20070319
  Serious: Yes (Death, Hospitalization)
  Sender: FDA-Public Use
  Company Number: US-JNJFOC-20061005536

PATIENT
  Age: 46 Year
  Sex: Female

DRUGS (3)
  1. FENTANYL [Suspect]
     Indication: INTENTIONAL DRUG MISUSE
     Route: 062
  2. ACETAMINOPHEN AND OXYCODONE HCL [Suspect]
     Indication: INTENTIONAL DRUG MISUSE
     Route: 048
  3. BENZO [Suspect]
     Indication: INTENTIONAL DRUG MISUSE
     Route: 048

REACTIONS (4)
  - CARDIO-RESPIRATORY ARREST [None]
  - DELUSION [None]
  - INCORRECT ROUTE OF DRUG ADMINISTRATION [None]
  - OVERDOSE [None]
